FAERS Safety Report 21945617 (Version 12)
Quarter: 2024Q3

REPORT INFORMATION
  Report Type: Spontaneous
  Country: US (occurrence: US)
  Receive Date: 20230202
  Receipt Date: 20240729
  Transmission Date: 20241017
  Serious: Yes (Other)
  Sender: PFIZER
  Company Number: US-PFIZER INC-PV202300005001

PATIENT
  Age: 77 Year
  Sex: Female

DRUGS (4)
  1. IBRANCE [Suspect]
     Active Substance: PALBOCICLIB
     Dosage: TAKE 1 BY MOUTH FOR 21 DAYS; DAILY FOR 21 DAYS
     Route: 048
  2. IBRANCE [Suspect]
     Active Substance: PALBOCICLIB
     Dosage: 75 MG
  3. IBRANCE [Suspect]
     Active Substance: PALBOCICLIB
     Dosage: 1 TABLET DAILY, QUANTITY: 21
     Route: 048
  4. IBRANCE [Suspect]
     Active Substance: PALBOCICLIB
     Dosage: 1 TABLET DAILY FOR 28 DAYS NEW DOSING TAKE 1 TABLET BY MOUTH ON DAYS 1-21 THEN OFF FOR 7 DAYS
     Route: 048

REACTIONS (9)
  - Platelet count decreased [Unknown]
  - Fatigue [Unknown]
  - Dyspnoea [Unknown]
  - Lymphoedema [Unknown]
  - Limb discomfort [Unknown]
  - Weight decreased [Unknown]
  - Decreased appetite [Unknown]
  - Stress [Unknown]
  - Tumour marker increased [Unknown]
